FAERS Safety Report 12304995 (Version 1)
Quarter: 2016Q2

REPORT INFORMATION
  Report Type: Spontaneous
  Country: US (occurrence: None)
  Receive Date: 20160425
  Receipt Date: 20160425
  Transmission Date: 20160815
  Serious: Yes (Hospitalization)
  Sender: FDA-Public Use
  Company Number: None

PATIENT
  Age: 72 Year
  Sex: Female
  Weight: 58.8 kg

DRUGS (1)
  1. TEMOZOLOMIDE. [Suspect]
     Active Substance: TEMOZOLOMIDE
     Dates: end: 20160401

REACTIONS (9)
  - Wrist fracture [None]
  - Oedema [None]
  - Cyst [None]
  - Drug intolerance [None]
  - Seizure [None]
  - Cerebrovascular accident [None]
  - Fall [None]
  - Incontinence [None]
  - Ataxia [None]

NARRATIVE: CASE EVENT DATE: 20160417
